FAERS Safety Report 5280330-4 (Version None)
Quarter: 2007Q1

REPORT INFORMATION
  Report Type: 
  Country: None (occurrence: None)
  Receive Date: 20070329
  Receipt Date: 20070323
  Transmission Date: 20070707
  Serious: Yes (Death, Other)
  Sender: FDA-Public Use
  Company Number: DE-ELI_LILLY_AND_COMPANY-DE200703005518

PATIENT
  Age: 52 Year
  Sex: Female

DRUGS (6)
  1. ZYPREXA [Suspect]
     Indication: DEPRESSION
     Dosage: 10 MG, DAILY (1/D)
     Route: 048
  2. CIPRALEX [Concomitant]
     Dosage: 20 MG, UNK
     Route: 048
  3. LORAZEPAM [Concomitant]
     Dosage: 2.5 MG, DAILY (1/D)
  4. LORAZEPAM [Concomitant]
     Dosage: 0.5 MG, DAILY (1/D)
  5. STILNOX [Concomitant]
  6. FLUANXOL [Concomitant]

REACTIONS (2)
  - COMPLETED SUICIDE [None]
  - SUICIDE ATTEMPT [None]
